FAERS Safety Report 19814132 (Version 1)
Quarter: 2021Q3

REPORT INFORMATION
  Report Type: Spontaneous
  Country: US (occurrence: US)
  Receive Date: 20210909
  Receipt Date: 20210909
  Transmission Date: 20211014
  Serious: Yes (Death, Other)
  Sender: FDA-Public Use
  Company Number: US-AMGEN-USASP2021139087

PATIENT
  Age: 83 Year
  Sex: Female

DRUGS (2)
  1. LUMAKRAS [Suspect]
     Active Substance: SOTORASIB
     Indication: LUNG NEOPLASM MALIGNANT
     Dosage: 8 TAB, QD
     Route: 048
     Dates: start: 20210707
  2. LUMAKRAS [Suspect]
     Active Substance: SOTORASIB
     Dosage: 1 TAB, QD
     Route: 048
     Dates: end: 20210725

REACTIONS (2)
  - Red blood cell count decreased [Unknown]
  - Death [Fatal]

NARRATIVE: CASE EVENT DATE: 2021
